FAERS Safety Report 9330747 (Version 2)
Quarter: 2013Q3

REPORT INFORMATION
  Report Type: Spontaneous
  Country: US (occurrence: US)
  Receive Date: 20130605
  Receipt Date: 20130704
  Transmission Date: 20140515
  Serious: No
  Sender: FDA-Public Use
  Company Number: US-009507513-1306USA001547

PATIENT
  Sex: Male
  Weight: 90.7 kg

DRUGS (4)
  1. PEG-INTRON [Suspect]
     Indication: HEPATITIS C
     Dosage: REDIPEN, 150 MICROGRAMS/0.5 ML,150 MICROGRAM, QW,
     Route: 058
     Dates: start: 20130503
  2. RIBAPAK [Suspect]
     Dosage: 1200/DAY
  3. SUBOXONE [Concomitant]
     Dosage: 8-2 MG
  4. PROTEIN (UNSPECIFIED) [Concomitant]

REACTIONS (7)
  - Vomiting [Recovered/Resolved]
  - Weight decreased [Recovered/Resolved]
  - Abdominal discomfort [Recovered/Resolved]
  - Dizziness [Recovered/Resolved]
  - Fatigue [Recovered/Resolved]
  - Nausea [Recovered/Resolved]
  - Decreased appetite [Recovered/Resolved]
